FAERS Safety Report 12178185 (Version 1)
Quarter: 2016Q1

REPORT INFORMATION
  Report Type: Spontaneous
  Country: US (occurrence: US)
  Receive Date: 20160315
  Receipt Date: 20160315
  Transmission Date: 20160526
  Serious: No
  Sender: FDA-Public Use
  Company Number: US-ASTRAZENECA-2016SE27681

PATIENT
  Sex: Male

DRUGS (5)
  1. ASPIRIN. [Suspect]
     Active Substance: ASPIRIN
     Route: 065
  2. KLONOPIN [Suspect]
     Active Substance: CLONAZEPAM
     Route: 065
  3. ANTIVERT [Suspect]
     Active Substance: MECLIZINE HYDROCHLORIDE
     Route: 065
  4. NEXIUM 24HR [Suspect]
     Active Substance: ESOMEPRAZOLE MAGNESIUM
     Route: 048
  5. CENTRUM [Suspect]
     Active Substance: VITAMINS
     Route: 065

REACTIONS (1)
  - Drug hypersensitivity [Unknown]
